FAERS Safety Report 21392941 (Version 1)
Quarter: 2022Q3

REPORT INFORMATION
  Report Type: Spontaneous
  Country: US (occurrence: None)
  Receive Date: 20220928
  Receipt Date: 20220928
  Transmission Date: 20221026
  Serious: No
  Sender: FDA-Public Use
  Company Number: None

PATIENT
  Age: 51 Year
  Sex: Female
  Weight: 112.5 kg

DRUGS (1)
  1. PEROXIE CARE TARTAR CONTROL HEALTHY GUMS BAKING SODA AND PEROXIDE [Suspect]
     Active Substance: SODIUM FLUORIDE
     Indication: Dental disorder prophylaxis
     Dosage: FREQUENCY : AT BEDTIME;?
     Dates: start: 20220824, end: 20220924

REACTIONS (5)
  - Swelling face [None]
  - Stomatitis [None]
  - Lip dry [None]
  - Chapped lips [None]
  - Rash [None]

NARRATIVE: CASE EVENT DATE: 20220901
